FAERS Safety Report 13284763 (Version 1)
Quarter: 2017Q1

REPORT INFORMATION
  Report Type: Spontaneous
  Country: SI (occurrence: SI)
  Receive Date: 20170301
  Receipt Date: 20170301
  Transmission Date: 20170428
  Serious: Yes (Other)
  Sender: FDA-Public Use
  Company Number: SI-REGENERON PHARMACEUTICALS, INC.-2017-12582

PATIENT

DRUGS (2)
  1. EYLEA [Suspect]
     Active Substance: AFLIBERCEPT
     Indication: DIABETIC RETINOPATHY
     Dosage: 1 DF, 2 SUCESSIVE INJECTIONS IN LEFT EYE
     Dates: start: 20151218
  2. EYLEA [Suspect]
     Active Substance: AFLIBERCEPT
     Dosage: 1 DF, 3 EYLEA DOSES SUCCESSIVELY IN RIGH EYE
     Dates: start: 20160325

REACTIONS (2)
  - Cystoid macular oedema [Unknown]
  - Visual acuity reduced [Unknown]

NARRATIVE: CASE EVENT DATE: 20160325
